FAERS Safety Report 6026348-5 (Version None)
Quarter: 2008Q4

REPORT INFORMATION
  Report Type: 
  Country: None (occurrence: None)
  Receive Date: 20081222
  Receipt Date: 20080922
  Transmission Date: 20090506
  Serious: No
  Sender: FDA-Public Use
  Company Number: US-WYE-H05005708

PATIENT
  Age: 58 Year
  Sex: Female

DRUGS (8)
  1. PRISTIQ [Suspect]
     Indication: DEPRESSION
     Dosage: 100 MG 1X PER 1 DAY, ORAL ; 100 MG 1X PER 1 DAY, ORAL ; 150 MG 1X PER 1 DAY, ORAL
     Route: 048
     Dates: start: 20080401, end: 20080601
  2. PRISTIQ [Suspect]
     Indication: DEPRESSION
     Dosage: 100 MG 1X PER 1 DAY, ORAL ; 100 MG 1X PER 1 DAY, ORAL ; 150 MG 1X PER 1 DAY, ORAL
     Route: 048
     Dates: start: 20080601, end: 20080701
  3. PRISTIQ [Suspect]
     Indication: DEPRESSION
     Dosage: 100 MG 1X PER 1 DAY, ORAL ; 100 MG 1X PER 1 DAY, ORAL ; 150 MG 1X PER 1 DAY, ORAL
     Route: 048
     Dates: start: 20080701
  4. LIPITOR [Concomitant]
  5. NORVASC [Concomitant]
  6. MAXZIDE [Concomitant]
  7. SYNTHROID [Concomitant]
  8. AMBIEN [Concomitant]

REACTIONS (5)
  - BREAST TENDERNESS [None]
  - DIARRHOEA [None]
  - LYMPHADENOPATHY [None]
  - OVULATION PAIN [None]
  - PREMENSTRUAL SYNDROME [None]
